FAERS Safety Report 11716694 (Version 1)
Quarter: 2015Q4

REPORT INFORMATION
  Report Type: Spontaneous
  Country: US (occurrence: US)
  Receive Date: 20151109
  Receipt Date: 20151109
  Transmission Date: 20160304
  Serious: No
  Sender: FDA-Public Use
  Company Number: US-GLAXOSMITHKLINE-US2015159430

PATIENT
  Age: 35 Year
  Sex: Male

DRUGS (1)
  1. NICODERM CQ [Suspect]
     Active Substance: NICOTINE
     Indication: SMOKING CESSATION THERAPY
     Dosage: UNK

REACTIONS (5)
  - Dizziness [Unknown]
  - Feeling abnormal [Unknown]
  - Headache [Unknown]
  - Nausea [Unknown]
  - Adverse event [Unknown]
